FAERS Safety Report 9012563 (Version 1)
Quarter: 2013Q1

REPORT INFORMATION
  Report Type: Spontaneous
  Country: US (occurrence: US)
  Receive Date: 20130114
  Receipt Date: 20130114
  Transmission Date: 20140127
  Serious: Yes (Death)
  Sender: FDA-Public Use
  Company Number: US-TEVA-379720USA

PATIENT
  Sex: Male

DRUGS (2)
  1. PROAIR HFA [Suspect]
     Indication: DYSPNOEA
  2. QVAR [Suspect]

REACTIONS (1)
  - Neoplasm malignant [Fatal]
